FAERS Safety Report 8193769-4 (Version None)
Quarter: 2012Q1

REPORT INFORMATION
  Report Type: 
  Country: None (occurrence: None)
  Receive Date: 20120308
  Receipt Date: 20120222
  Transmission Date: 20120608
  Serious: Yes (Hospitalization, Other)
  Sender: FDA-Public Use
  Company Number: TW-WATSON-2012-03726

PATIENT
  Age: 70 Year
  Sex: Female

DRUGS (1)
  1. BACLOFEN [Suspect]
     Indication: MYALGIA
     Dosage: 5 MG, TID
     Route: 048

REACTIONS (4)
  - TOXIC ENCEPHALOPATHY [None]
  - DISORIENTATION [None]
  - OVERDOSE [None]
  - CONFUSIONAL STATE [None]
